FAERS Safety Report 8456884-3 (Version None)
Quarter: 2012Q2

REPORT INFORMATION
  Report Type: 
  Country: None (occurrence: None)
  Receive Date: 20120621
  Receipt Date: 20120606
  Transmission Date: 20120825
  Serious: No
  Sender: FDA-Public Use
  Company Number: CG-ASTRAZENECA-2012SE38160

PATIENT
  Age: 22 Year
  Sex: Male

DRUGS (2)
  1. NEXIUM [Suspect]
     Route: 048
  2. PRILOSEC [Suspect]
     Route: 048

REACTIONS (5)
  - ADVERSE EVENT [None]
  - DRUG DOSE OMISSION [None]
  - VOMITING [None]
  - HYPERCHLORHYDRIA [None]
  - DRUG INEFFECTIVE [None]
